FAERS Safety Report 13547831 (Version 1)
Quarter: 2017Q2

REPORT INFORMATION
  Report Type: Spontaneous
  Country: US (occurrence: US)
  Receive Date: 20170516
  Receipt Date: 20170516
  Transmission Date: 20170830
  Serious: No
  Sender: FDA-Public Use
  Company Number: US-BAUSCH-BL-2017-006148

PATIENT
  Age: 77 Year
  Sex: Male
  Weight: 108.96 kg

DRUGS (2)
  1. DUREZOL [Concomitant]
     Active Substance: DIFLUPREDNATE
     Indication: EYE SWELLING
     Dosage: 1 DROP IN THE LEFT EYE
     Route: 061
     Dates: start: 201703
  2. LATANOPROST OPHTHALMIC SOLUTION 0.005% [Suspect]
     Active Substance: LATANOPROST
     Indication: EYE SWELLING
     Dosage: 1 DROP IN EACH EYE QHS
     Route: 061
     Dates: start: 201703

REACTIONS (2)
  - Vomiting [Not Recovered/Not Resolved]
  - Dizziness [Not Recovered/Not Resolved]

NARRATIVE: CASE EVENT DATE: 20170308
